FAERS Safety Report 18474044 (Version 5)
Quarter: 2021Q1

REPORT INFORMATION
  Report Type: Spontaneous
  Country: PT (occurrence: PT)
  Receive Date: 20201106
  Receipt Date: 20210129
  Transmission Date: 20210419
  Serious: Yes (Hospitalization, Other)
  Sender: FDA-Public Use
  Company Number: PT-GILEAD-2020-0496885

PATIENT
  Age: 78 Year
  Sex: Male
  Weight: 78 kg

DRUGS (20)
  1. ENOXAPARIN SODIUM. [Concomitant]
     Active Substance: ENOXAPARIN SODIUM
     Route: 058
  2. NORADRENALINE (NORPINEPHRINE) [Concomitant]
     Active Substance: NOREPINEPHRINE
     Dosage: 10 MG, UNK
     Route: 042
  3. MIDAZOLAM. [Concomitant]
     Active Substance: MIDAZOLAM
     Route: 042
  4. PARACETAMOL [Concomitant]
     Active Substance: ACETAMINOPHEN
  5. BISACODYL. [Concomitant]
     Active Substance: BISACODYL
     Route: 048
  6. VEKLURY [Suspect]
     Active Substance: REMDESIVIR
     Indication: COVID-19 PNEUMONIA
     Dosage: 200 MG, ONCE
     Route: 042
     Dates: start: 20200905, end: 20200905
  7. ERYTHROMYCIN. [Concomitant]
     Active Substance: ERYTHROMYCIN
  8. ALFENTANIL. [Concomitant]
     Active Substance: ALFENTANIL
     Route: 042
  9. VEKLURY [Suspect]
     Active Substance: REMDESIVIR
     Dosage: 100 MG, QD
     Route: 042
     Dates: start: 20200906, end: 20200908
  10. SUCRALFATE. [Concomitant]
     Active Substance: SUCRALFATE
     Route: 048
  11. ROCURONIUM BROMIDE. [Concomitant]
     Active Substance: ROCURONIUM BROMIDE
     Dosage: 250 MG, UNK
     Route: 042
  12. AMLODIPINE [Concomitant]
     Active Substance: AMLODIPINE BESYLATE
     Dosage: 5 MG, UNK
     Route: 048
  13. PIPERACILLIN AND TAZOBACTAM [Concomitant]
     Active Substance: PIPERACILLIN SODIUM\TAZOBACTAM SODIUM
     Route: 042
  14. ERYTHROMYCIN. [Concomitant]
     Active Substance: ERYTHROMYCIN
     Route: 042
  15. TERLIPRESSIN [Concomitant]
     Active Substance: TERLIPRESSIN
     Dosage: UNK
     Route: 042
  16. METOCLOPRAMIDE. [Concomitant]
     Active Substance: METOCLOPRAMIDE
     Dosage: 10 MG, UNK
     Route: 042
  17. ENOXAPARIN SODIUM. [Concomitant]
     Active Substance: ENOXAPARIN SODIUM
     Dosage: 20 MG, UNK
     Route: 058
  18. MIDAZOLAM. [Concomitant]
     Active Substance: MIDAZOLAM
     Route: 042
  19. METOCLOPRAMIDE. [Concomitant]
     Active Substance: METOCLOPRAMIDE
     Route: 048
  20. SUCRALFATE. [Concomitant]
     Active Substance: SUCRALFATE
     Dosage: 1000 UNK, UNK
     Route: 048

REACTIONS (3)
  - Renal impairment [Recovered/Resolved]
  - Mechanical ventilation [Unknown]
  - COVID-19 treatment [Unknown]

NARRATIVE: CASE EVENT DATE: 20200908
